FAERS Safety Report 10786525 (Version 1)
Quarter: 2015Q1

REPORT INFORMATION
  Report Type: Spontaneous
  Country: US (occurrence: None)
  Receive Date: 20150210
  Receipt Date: 20150210
  Transmission Date: 20150721
  Serious: Yes (Other)
  Sender: FDA-Public Use
  Company Number: None

PATIENT
  Age: 39 Year
  Sex: Female
  Weight: 47.63 kg

DRUGS (2)
  1. VENLAFAXINE HCL [Suspect]
     Active Substance: VENLAFAXINE HYDROCHLORIDE
     Indication: ANXIETY
     Dosage: 75 MG 1 PILL AT BEDTIME TAKEN BY MOUTH
     Route: 048
     Dates: start: 20140826, end: 20150122
  2. VENLAFAXINE HCL [Suspect]
     Active Substance: VENLAFAXINE HYDROCHLORIDE
     Indication: DEPRESSION
     Dosage: 75 MG 1 PILL AT BEDTIME TAKEN BY MOUTH
     Route: 048
     Dates: start: 20140826, end: 20150122

REACTIONS (12)
  - Vertigo [None]
  - Headache [None]
  - Vision blurred [None]
  - Adverse drug reaction [None]
  - Tremor [None]
  - Paraesthesia [None]
  - Photophobia [None]
  - Drug withdrawal syndrome [None]
  - Amnesia [None]
  - Weight increased [None]
  - Abdominal distension [None]
  - Dizziness [None]

NARRATIVE: CASE EVENT DATE: 20140826
